FAERS Safety Report 7766364-6 (Version None)
Quarter: 2011Q3

REPORT INFORMATION
  Report Type: 
  Country: None (occurrence: None)
  Receive Date: 20110922
  Receipt Date: 20110915
  Transmission Date: 20111222
  Serious: Yes (Hospitalization)
  Sender: FDA-Public Use
  Company Number: US-BIOGENIDEC-2011BI032491

PATIENT
  Age: 70 Year
  Sex: Female

DRUGS (2)
  1. TYSABRI [Suspect]
     Indication: MULTIPLE SCLEROSIS
     Route: 042
     Dates: start: 20110112, end: 20110811
  2. TYSABRI [Suspect]
     Route: 042
     Dates: start: 20080114, end: 20100120

REACTIONS (5)
  - COORDINATION ABNORMAL [None]
  - MUSCULAR WEAKNESS [None]
  - GENERAL SYMPTOM [None]
  - VISION BLURRED [None]
  - DIZZINESS [None]
